FAERS Safety Report 14607062 (Version 1)
Quarter: 2018Q1

REPORT INFORMATION
  Report Type: Spontaneous
  Country: US (occurrence: US)
  Receive Date: 20180306
  Receipt Date: 20180306
  Transmission Date: 20180509
  Serious: No
  Sender: FDA-Public Use
  Company Number: None

PATIENT
  Sex: Male

DRUGS (3)
  1. LEVOFLOXACIN. [Suspect]
     Active Substance: LEVOFLOXACIN
  2. CIPROFLOXACIN. [Suspect]
     Active Substance: CIPROFLOXACIN
  3. GENTAMICIN. [Suspect]
     Active Substance: GENTAMICIN

REACTIONS (19)
  - Balance disorder [None]
  - Myasthenia gravis [None]
  - Drug ineffective [None]
  - Loss of control of legs [None]
  - Gait disturbance [None]
  - Peroneal nerve palsy [None]
  - Arthritis [None]
  - Peripheral swelling [None]
  - Rhabdomyolysis [None]
  - Product use issue [None]
  - Sensory disturbance [None]
  - Fall [None]
  - Asthenia [None]
  - Nausea [None]
  - Urinary tract infection [None]
  - Neuropathy peripheral [None]
  - Paraparesis [None]
  - Dysphagia [None]
  - Sexual dysfunction [None]
